FAERS Safety Report 7609947-6 (Version None)
Quarter: 2011Q3

REPORT INFORMATION
  Report Type: 
  Country: None (occurrence: None)
  Receive Date: 20110714
  Receipt Date: 20110414
  Transmission Date: 20111222
  Serious: No
  Sender: FDA-Public Use
  Company Number: US-TYCO HEALTHCARE/MALLINCKRODT-T201100786

PATIENT
  Age: 76 Year
  Sex: Female

DRUGS (14)
  1. OXYCODONE HCL [Suspect]
     Indication: INTERVERTEBRAL DISC DEGENERATION
     Dosage: 1 TAB Q4-6 PRN
     Route: 048
     Dates: start: 20110401
  2. ALBUTEROL [Concomitant]
     Dosage: UNK, PRN
  3. LORAZEPAM [Concomitant]
  4. SIMVASTATIN [Concomitant]
     Dosage: UNK
  5. GLYBURIDE [Concomitant]
     Dosage: UNK
  6. ZANTAC                             /00550802/ [Concomitant]
     Dosage: UNK
  7. VENTOLIN [Concomitant]
  8. DICYCLOMINE [Concomitant]
     Dosage: UNK
  9. THEOPHYLLINE [Concomitant]
     Dosage: UNK
  10. METOPROLOL TARTRATE [Concomitant]
  11. PREDNISONE [Concomitant]
  12. HYDROCHLOROTHIAZIDE [Concomitant]
     Dosage: UNK
  13. CALCITONIN SALMON [Concomitant]
  14. DIGOXIN [Concomitant]
     Dosage: UNK

REACTIONS (1)
  - DRUG SCREEN NEGATIVE [None]
